FAERS Safety Report 5228088-9 (Version None)
Quarter: 2007Q1

REPORT INFORMATION
  Report Type: 
  Country: None (occurrence: None)
  Receive Date: 20070130
  Receipt Date: 20070118
  Transmission Date: 20070707
  Serious: Yes (Hospitalization)
  Sender: FDA-Public Use
  Company Number: T07-USA-00363-01

PATIENT
  Age: 49 Year
  Sex: Female
  Weight: 52.1637 kg

DRUGS (11)
  1. MEMANTINE HCL [Suspect]
     Indication: MIGRAINE
     Dosage: 10 MG BID PO
     Route: 048
     Dates: start: 20061017
  2. TOPAMAX [Concomitant]
  3. NORTRIPTYLINE HCL [Concomitant]
  4. ZANTAC [Concomitant]
  5. DEPAKOTE [Concomitant]
  6. RELPAX (ELETRIPTAN (HYDROBROMIDE) [Concomitant]
  7. DECADRON [Concomitant]
  8. ZOFRAN [Concomitant]
  9. VITAMIN B-12 [Concomitant]
  10. MAGNESIUM CHELATED [Concomitant]
  11. DHE-45 (DIHYDROERGOTAMINE MESILATE) [Concomitant]

REACTIONS (2)
  - CHOLECYSTECTOMY [None]
  - PAIN [None]
